FAERS Safety Report 9734874 (Version 1)
Quarter: 2013Q4

REPORT INFORMATION
  Report Type: Spontaneous
  Country: US (occurrence: US)
  Receive Date: 20131206
  Receipt Date: 20131206
  Transmission Date: 20140711
  Serious: No
  Sender: FDA-Public Use
  Company Number: US-BAYER-2013-149401

PATIENT
  Age: 68 Year
  Sex: Female

DRUGS (2)
  1. ALEVE CAPLET [Suspect]
     Indication: MYOSITIS
     Dosage: 2 DF, BID
     Route: 048
     Dates: start: 20131203, end: 20131204
  2. TRAMADOL [Concomitant]

REACTIONS (4)
  - Restlessness [Recovered/Resolved]
  - Pollakiuria [Recovered/Resolved]
  - Off label use [None]
  - Extra dose administered [None]
